FAERS Safety Report 11778239 (Version 1)
Quarter: 2015Q4

REPORT INFORMATION
  Report Type: Report from Study
  Country: US (occurrence: US)
  Receive Date: 20151125
  Receipt Date: 20151125
  Transmission Date: 20160304
  Serious: Yes (Hospitalization)
  Sender: FDA-Public Use
  Company Number: US-BAYER-2015-387597

PATIENT
  Age: 41 Year
  Sex: Female

DRUGS (7)
  1. PERCOCET [Concomitant]
     Active Substance: ACETAMINOPHEN\OXYCODONE HYDROCHLORIDE
     Indication: BACK PAIN
  2. STIVARGA [Suspect]
     Active Substance: REGORAFENIB
     Indication: COLON CANCER METASTATIC
     Dosage: 80 MG, QD
     Route: 048
     Dates: start: 20150720, end: 20150816
  3. FENTANYL. [Concomitant]
     Active Substance: FENTANYL
     Indication: MYALGIA
  4. STIVARGA [Suspect]
     Active Substance: REGORAFENIB
     Indication: SEPSIS
     Dosage: 160 MG, QD
     Route: 048
     Dates: start: 20150914, end: 20151010
  5. PERCOCET [Concomitant]
     Active Substance: ACETAMINOPHEN\OXYCODONE HYDROCHLORIDE
     Indication: MYALGIA
  6. FENTANYL. [Concomitant]
     Active Substance: FENTANYL
     Indication: BACK PAIN
  7. STIVARGA [Suspect]
     Active Substance: REGORAFENIB
     Indication: METASTASES TO PELVIS
     Dosage: 120 MG, QD
     Route: 048
     Dates: start: 20150817, end: 2015

REACTIONS (18)
  - Micturition urgency [None]
  - Pain in extremity [Not Recovered/Not Resolved]
  - Decreased appetite [None]
  - Onychalgia [None]
  - Back pain [Not Recovered/Not Resolved]
  - Abscess intestinal [None]
  - Abdominal distension [None]
  - Nausea [None]
  - Vomiting [None]
  - Rectal discharge [None]
  - Abdominal pain [None]
  - Weight decreased [None]
  - Defaecation urgency [None]
  - Myalgia [None]
  - Gastrointestinal motility disorder [None]
  - Flatulence [None]
  - Constipation [None]
  - Fatigue [None]

NARRATIVE: CASE EVENT DATE: 201507
